FAERS Safety Report 22218127 (Version 1)
Quarter: 2023Q2

REPORT INFORMATION
  Report Type: Spontaneous
  Country: AU (occurrence: AU)
  Receive Date: 20230417
  Receipt Date: 20230417
  Transmission Date: 20230722
  Serious: Yes (Other)
  Sender: FDA-Public Use
  Company Number: AU-PFIZER INC-PV202300064881

PATIENT
  Age: 74 Year
  Sex: Female

DRUGS (2)
  1. GEMCITABINE HYDROCHLORIDE [Suspect]
     Active Substance: GEMCITABINE HYDROCHLORIDE
     Indication: Lung squamous cell carcinoma metastatic
     Dosage: UNK UNK, CYCLIC, COMPLETED HER SECOND CYCLE
  2. CARBOPLATIN [Concomitant]
     Active Substance: CARBOPLATIN
     Indication: Lung squamous cell carcinoma metastatic
     Dosage: UNK, CYCLIC, COMPLETED HER SECOND CYCLE

REACTIONS (3)
  - Recall phenomenon [Recovering/Resolving]
  - Muscle necrosis [Recovering/Resolving]
  - Focal myositis [Recovering/Resolving]
